FAERS Safety Report 20290566 (Version 1)
Quarter: 2022Q1

REPORT INFORMATION
  Report Type: Spontaneous
  Country: FR (occurrence: FR)
  Receive Date: 20220104
  Receipt Date: 20220104
  Transmission Date: 20220423
  Serious: Yes (Hospitalization)
  Sender: FDA-Public Use
  Company Number: None

PATIENT
  Age: 75 Year
  Sex: Male
  Weight: 65 kg

DRUGS (2)
  1. INLYTA [Suspect]
     Active Substance: AXITINIB
     Indication: Autoimmune colitis
     Dosage: UNK
     Route: 048
     Dates: start: 20210520, end: 20210728
  2. PREDNISONE [Suspect]
     Active Substance: PREDNISONE
     Indication: Autoimmune colitis
     Dosage: 60 MG, 1X/DAY
     Route: 048
     Dates: start: 202104, end: 202110

REACTIONS (2)
  - Osteonecrosis [Not Recovered/Not Resolved]
  - Off label use [Unknown]

NARRATIVE: CASE EVENT DATE: 20210520
